FAERS Safety Report 9099466 (Version 2)
Quarter: 2013Q1

REPORT INFORMATION
  Report Type: Spontaneous
  Country: US (occurrence: US)
  Receive Date: 20130214
  Receipt Date: 20130220
  Transmission Date: 20140127
  Serious: No
  Sender: FDA-Public Use
  Company Number: US-009507513-1302USA006646

PATIENT
  Sex: Female

DRUGS (2)
  1. COPPERTONE SENSITIVE SKIN FACES SPF-50 [Suspect]
     Indication: PRODUCT USED FOR UNKNOWN INDICATION
     Dosage: UNK, UNKNOWN
     Route: 061
     Dates: start: 201208
  2. COPPERTONE SENSITIVE SKIN FACES SPF-50 [Suspect]
     Dosage: UNK

REACTIONS (1)
  - Eye irritation [Unknown]
